FAERS Safety Report 11911153 (Version 1)
Quarter: 2016Q1

REPORT INFORMATION
  Report Type: Spontaneous
  Country: US (occurrence: US)
  Receive Date: 20160112
  Receipt Date: 20160112
  Transmission Date: 20160526
  Serious: No
  Sender: FDA-Public Use
  Company Number: US-TARO-2015TAR00584

PATIENT
  Age: 54 Year
  Sex: Male
  Weight: 97.51 kg

DRUGS (1)
  1. KETOCONAZOLE CREAM 2% [Suspect]
     Active Substance: KETOCONAZOLE
     Indication: RASH
     Dosage: 1 DOSAGE UNITS, TWICE
     Route: 061
     Dates: start: 20150612, end: 20150612

REACTIONS (2)
  - Application site pain [Recovered/Resolved]
  - Product quality issue [Not Recovered/Not Resolved]

NARRATIVE: CASE EVENT DATE: 20150612
